FAERS Safety Report 24096600 (Version 1)
Quarter: 2024Q3

REPORT INFORMATION
  Report Type: Spontaneous
  Country: US (occurrence: None)
  Receive Date: 20240715
  Receipt Date: 20240715
  Transmission Date: 20241016
  Serious: No
  Sender: Public
  Company Number: None

PATIENT
  Age: 50 Year
  Sex: Female

DRUGS (1)
  1. EMGALITY [Suspect]
     Active Substance: GALCANEZUMAB-GNLM
     Dosage: 120 MG/ML ONCE A MONTH SUBCUTANEOUS
     Route: 058
     Dates: start: 20220920

REACTIONS (1)
  - Gastric infection [None]

NARRATIVE: CASE EVENT DATE: 20240618
